FAERS Safety Report 24366792 (Version 1)
Quarter: 2024Q3

REPORT INFORMATION
  Report Type: Spontaneous
  Country: FR (occurrence: FR)
  Receive Date: 20240926
  Receipt Date: 20240926
  Transmission Date: 20241017
  Serious: Yes (Other)
  Sender: B BRAUN
  Company Number: FR-B.Braun Medical Inc.-2162063

PATIENT
  Age: 19 Year
  Sex: Male

DRUGS (9)
  1. ACETAMINOPHEN [Suspect]
     Active Substance: ACETAMINOPHEN
  2. ALCOHOL [Suspect]
     Active Substance: ALCOHOL
  3. DRONABINOL [Suspect]
     Active Substance: DRONABINOL
  4. CODEINE [Suspect]
     Active Substance: CODEINE
  5. 5-FLUORO-APINACA [Suspect]
     Active Substance: 5-FLUORO-APINACA
  6. CANNABIDIOL [Suspect]
     Active Substance: CANNABIDIOL
  7. CAFFEINE [Suspect]
     Active Substance: CAFFEINE
  8. CANNABINOL [Suspect]
     Active Substance: CANNABINOL
  9. CANNABIGEROL\HERBALS [Suspect]
     Active Substance: CANNABIGEROL\HERBALS

REACTIONS (3)
  - Drug abuse [Not Recovered/Not Resolved]
  - Intentional product misuse [Not Recovered/Not Resolved]
  - Dissociation [Not Recovered/Not Resolved]
